FAERS Safety Report 6866662-4 (Version None)
Quarter: 2010Q2

REPORT INFORMATION
  Report Type: 
  Country: None (occurrence: None)
  Receive Date: 20100610
  Receipt Date: 20100422
  Transmission Date: 20101027
  Serious: No
  Sender: FDA-Public Use
  Company Number: 2010SP023293

PATIENT
  Age: 48 Year
  Sex: Female

DRUGS (1)
  1. SAPHRIS [Suspect]
     Indication: BIPOLAR DISORDER
     Dosage: 5 MG;BID;SL; 15 MG;QD;SL

REACTIONS (3)
  - ARTHRALGIA [None]
  - JOINT SWELLING [None]
  - NO THERAPEUTIC RESPONSE [None]
